FAERS Safety Report 9631158 (Version 2)
Quarter: 2013Q4

REPORT INFORMATION
  Report Type: Spontaneous
  Country: GB (occurrence: None)
  Receive Date: 20131016
  Receipt Date: 20131127
  Transmission Date: 20140711
  Serious: Yes (Hospitalization)
  Sender: FDA-Public Use
  Company Number: FK201304592

PATIENT
  Age: 39 Year
  Sex: Female
  Weight: 60 kg

DRUGS (4)
  1. METHOTREXATE (MANUFACTURER UNKNOWN) (METHOTREXATE) (METHOTREXATE) [Suspect]
     Indication: ARTHRITIS
     Dates: start: 201208, end: 201212
  2. METHOTREXATE (MANUFACTURER UNKNOWN) (METHOTREXATE) (METHOTREXATE) [Suspect]
     Indication: PSORIATIC ARTHROPATHY
     Dates: start: 201208, end: 201212
  3. EPILIM CHRONO (SODIUM VALPROATE) (SODIUM VALPROATE) [Suspect]
     Indication: AFFECTIVE DISORDER
     Dosage: 1 IN 1 D
     Route: 048
     Dates: start: 2003
  4. EPILIM CHRONO (SODIUM VALPROATE) (SODIUM VALPROATE) [Suspect]
     Indication: BIPOLAR DISORDER
     Dosage: 1 IN 1 D
     Route: 048
     Dates: start: 2003

REACTIONS (11)
  - Acute psychosis [None]
  - Mouth ulceration [None]
  - Nausea [None]
  - Off label use [None]
  - Weight increased [None]
  - Drug interaction [None]
  - Hypertrichosis [None]
  - Mania [None]
  - Disease recurrence [None]
  - Drug effect decreased [None]
  - Mental disorder [None]
